FAERS Safety Report 12167873 (Version 1)
Quarter: 2016Q1

REPORT INFORMATION
  Report Type: Spontaneous
  Country: US (occurrence: None)
  Receive Date: 20160309
  Receipt Date: 20160309
  Transmission Date: 20160526
  Serious: Yes (Disabling)
  Sender: FDA-Public Use
  Company Number: None

PATIENT
  Age: 75 Year
  Sex: Female
  Weight: 202 kg

DRUGS (11)
  1. MAXZIDE [Concomitant]
     Active Substance: HYDROCHLOROTHIAZIDE\TRIAMTERENE
  2. VITAMIN D [Concomitant]
     Active Substance: CHOLECALCIFEROL
  3. RESERVATOL [Concomitant]
  4. B12  MINERALS [Concomitant]
  5. IBUPROFEN. [Concomitant]
     Active Substance: IBUPROFEN
  6. CHROMIUM [Concomitant]
     Active Substance: CHROMIC CHLORIDE\CHROMIUM
  7. MULTIVITAMIN [Concomitant]
     Active Substance: VITAMINS
  8. ATENOLOL. [Concomitant]
     Active Substance: ATENOLOL
  9. CALCIUM LOCTATE [Concomitant]
  10. LISINOPRIL. [Suspect]
     Active Substance: LISINOPRIL
     Indication: BLOOD PRESSURE INCREASED
     Dosage: 1 PILL/DAY, 1 IN A.M.??FEW DAYS LATER
     Route: 048
     Dates: start: 20160127
  11. COD LIVER OIL [Concomitant]
     Active Substance: COD LIVER OIL

REACTIONS (2)
  - Heart rate increased [None]
  - Blood pressure abnormal [None]

NARRATIVE: CASE EVENT DATE: 20160127
